FAERS Safety Report 21517495 (Version 1)
Quarter: 2022Q4

REPORT INFORMATION
  Report Type: Report from Study
  Country: CA (occurrence: CA)
  Receive Date: 20221028
  Receipt Date: 20221028
  Transmission Date: 20230113
  Serious: Yes (Other)
  Sender: FDA-Public Use
  Company Number: CA-NOVARTISPH-NVSC2021CA250179

PATIENT
  Age: 33 Year
  Sex: Female

DRUGS (4)
  1. KESIMPTA [Suspect]
     Active Substance: OFATUMUMAB
     Indication: Relapsing-remitting multiple sclerosis
     Dosage: UNK
     Route: 058
     Dates: start: 20211026
  2. KESIMPTA [Suspect]
     Active Substance: OFATUMUMAB
     Dosage: UNK
     Route: 065
     Dates: start: 20211123
  3. KESIMPTA [Suspect]
     Active Substance: OFATUMUMAB
     Dosage: UNK
     Route: 065
     Dates: start: 20211223
  4. KESIMPTA [Suspect]
     Active Substance: OFATUMUMAB
     Dosage: UNK
     Route: 065
     Dates: start: 20220123

REACTIONS (14)
  - Hemiparesis [Unknown]
  - Nausea [Unknown]
  - Muscular weakness [Unknown]
  - Pain [Unknown]
  - Throat irritation [Unknown]
  - Oropharyngeal pain [Unknown]
  - Fatigue [Unknown]
  - Infection [Unknown]
  - Cough [Not Recovered/Not Resolved]
  - Headache [Unknown]
  - Chills [Unknown]
  - Pharyngitis [Unknown]
  - Nasopharyngitis [Unknown]
  - Product storage error [Unknown]

NARRATIVE: CASE EVENT DATE: 20211027
